FAERS Safety Report 10616447 (Version 5)
Quarter: 2014Q4

REPORT INFORMATION
  Report Type: Report from Study
  Country: CN (occurrence: CN)
  Receive Date: 20141201
  Receipt Date: 20141230
  Transmission Date: 20150529
  Serious: Yes (Death, Life-Threatening, Hospitalization, Other)
  Sender: FDA-Public Use
  Company Number: CN-ACTELION-A-CH2014-108705

PATIENT
  Age: 24 Year
  Sex: Female
  Weight: 48.8 kg

DRUGS (2)
  1. MACITENTAN [Suspect]
     Active Substance: MACITENTAN
     Indication: EISENMENGER^S SYNDROME
     Dosage: 10 MG, QD
     Route: 048
     Dates: start: 20140915, end: 20141118
  2. DESOGESTREL AND ETINILESTRADIOL [Concomitant]
     Dosage: UNK
     Dates: start: 201304

REACTIONS (10)
  - Respiratory failure [Unknown]
  - Vomiting [Fatal]
  - Loss of consciousness [Fatal]
  - Brain herniation [Fatal]
  - Pneumonia [Unknown]
  - Muscle twitching [Fatal]
  - Headache [Fatal]
  - Glioblastoma [Fatal]
  - Epilepsy [Fatal]
  - White blood cell count increased [Unknown]

NARRATIVE: CASE EVENT DATE: 20141117
